FAERS Safety Report 24370749 (Version 2)
Quarter: 2024Q4

REPORT INFORMATION
  Report Type: Spontaneous
  Country: CA (occurrence: CA)
  Receive Date: 20240927
  Receipt Date: 20241212
  Transmission Date: 20250114
  Serious: Yes (Hospitalization, Other)
  Sender: CELLTRION
  Company Number: CA-PFIZER INC-PV202400119373

PATIENT

DRUGS (6)
  1. INFLECTRA [Suspect]
     Active Substance: INFLIXIMAB-DYYB
     Indication: Crohn^s disease
     Dosage: 400 MG, 0,2,6THEN EVERY 8 WEEKS (WEEK 0 IN HOSPITAL)
     Route: 042
     Dates: start: 20240823
  2. INFLECTRA [Suspect]
     Active Substance: INFLIXIMAB-DYYB
     Dosage: 400 MG (5 MG/KG), 0,2,6 THEN EVERY 8 WEEKS (WEEK 2) (RECIVED 2 WEEKS 6 DAYS)
     Route: 042
     Dates: start: 20240911
  3. INFLECTRA [Suspect]
     Active Substance: INFLIXIMAB-DYYB
     Dosage: 400 MG (5 MG/KG), 0,2,6 THEN EVERY 8 WEEKS (WEEK 6)
     Route: 042
     Dates: start: 20241009
  4. INFLECTRA [Suspect]
     Active Substance: INFLIXIMAB-DYYB
     Dosage: 400 MG (5 MG/KG), 0,2,6 THEN EVERY 8 WEEKS (RECEIVED 7 WEEKS 3 DAYS)
     Route: 042
     Dates: start: 20241129
  5. PREDNISONE [Concomitant]
     Active Substance: PREDNISONE
     Dosage: UNK
  6. ENTOCORT [Concomitant]
     Active Substance: BUDESONIDE
     Dosage: UNK

REACTIONS (4)
  - Condition aggravated [Unknown]
  - Abdominal infection [Recovering/Resolving]
  - Fatigue [Recovering/Resolving]
  - Inappropriate schedule of product administration [Unknown]

NARRATIVE: CASE EVENT DATE: 20240101
